FAERS Safety Report 6766081-5 (Version None)
Quarter: 2010Q2

REPORT INFORMATION
  Report Type: 
  Country: None (occurrence: None)
  Receive Date: 20100611
  Receipt Date: 20100608
  Transmission Date: 20101027
  Serious: Yes (Hospitalization, Other)
  Sender: FDA-Public Use
  Company Number: D0067508A

PATIENT
  Age: 11 Year
  Sex: Female

DRUGS (1)
  1. VIANI [Suspect]
     Indication: ASTHMA
     Route: 055
     Dates: start: 20100401, end: 20100422

REACTIONS (2)
  - DYSPNOEA [None]
  - UPPER AIRWAY OBSTRUCTION [None]
